FAERS Safety Report 20952467 (Version 1)
Quarter: 2022Q2

REPORT INFORMATION
  Report Type: Other
  Country: CA (occurrence: None)
  Receive Date: 20220613
  Receipt Date: 20220613
  Transmission Date: 20220721
  Serious: No
  Sender: FDA-Public Use
  Company Number: CA-ROCHE-2851718

PATIENT
  Age: 43 Year
  Sex: Female

DRUGS (3)
  1. OCREVUS [Suspect]
     Active Substance: OCRELIZUMAB
     Indication: Relapsing-remitting multiple sclerosis
     Dosage: 300 MG AT DAY 0 AND 14, THEN 600 MG EVERY 6 MONTH
     Route: 042
     Dates: start: 20210610
  2. MODERNA COVID-19 VACCINE [Suspect]
     Active Substance: ELASOMERAN
     Indication: Product used for unknown indication
     Dosage: 15/NOV/2021 (2ND DOSE), 15/DEC/2021 (3RD DOSE)
     Route: 065
     Dates: start: 20211019
  3. AMANTADINE [Concomitant]
     Active Substance: AMANTADINE

REACTIONS (5)
  - Infusion related reaction [Recovered/Resolved]
  - Infusion site bruising [Not Recovered/Not Resolved]
  - Headache [Recovered/Resolved]
  - Influenza [Not Recovered/Not Resolved]
  - Asthenia [Recovered/Resolved]

NARRATIVE: CASE EVENT DATE: 20210610
